FAERS Safety Report 24338328 (Version 1)
Quarter: 2024Q3

REPORT INFORMATION
  Report Type: Spontaneous
  Country: US (occurrence: US)
  Receive Date: 20240919
  Receipt Date: 20240919
  Transmission Date: 20241017
  Serious: Yes (Other)
  Sender: JUBILANT
  Company Number: US-JUBILANT CADISTA PHARMACEUTICALS-2024US001320

PATIENT
  Age: 56 Year

DRUGS (2)
  1. SPIRONOLACTONE [Suspect]
     Active Substance: SPIRONOLACTONE
     Indication: Spinal cord injury
     Dosage: UNK, UNK
  2. ESTROGENS [Suspect]
     Active Substance: ESTROGENS
     Indication: Spinal cord injury
     Dosage: UNK, UNK

REACTIONS (2)
  - Thrombosis [Unknown]
  - Hypotension [Unknown]
